FAERS Safety Report 9165937 (Version 1)
Quarter: 2013Q1

REPORT INFORMATION
  Report Type: Spontaneous
  Country: US (occurrence: None)
  Receive Date: 20130301
  Receipt Date: 20130301
  Transmission Date: 20140127
  Serious: Yes (Other)
  Sender: FDA-Public Use
  Company Number: 20130060

PATIENT
  Age: 35 Year
  Sex: Male

DRUGS (2)
  1. DEXAMETHASONE SODIUM PHOSPHATE INJECTION, USP (4901-25) 4 MG/ML [Suspect]
     Indication: PULMONARY SARCOIDOSIS
  2. DEXAMETHASONE SODIUM PHOSPHATE INJECTION, USP (4901-25) 4 MG/ML [Suspect]
     Indication: CEREBRAL SARCOIDOSIS

REACTIONS (7)
  - Brain abscess [None]
  - Fungal infection [None]
  - Dysarthria [None]
  - Balance disorder [None]
  - Mental status changes [None]
  - VIIth nerve paralysis [None]
  - Deafness unilateral [None]
